FAERS Safety Report 9642567 (Version 1)
Quarter: 2013Q4

REPORT INFORMATION
  Report Type: Spontaneous
  Country: US (occurrence: US)
  Receive Date: 20131024
  Receipt Date: 20131024
  Transmission Date: 20140711
  Serious: No
  Sender: FDA-Public Use
  Company Number: US-PFIZER INC-2013301729

PATIENT
  Age: 57 Year
  Sex: Male

DRUGS (1)
  1. INLYTA [Suspect]
     Dosage: 3 MG, 2X/DAY
     Dates: start: 20121217

REACTIONS (2)
  - Headache [Unknown]
  - Diarrhoea [Unknown]
